FAERS Safety Report 7654817-0 (Version None)
Quarter: 2011Q3

REPORT INFORMATION
  Report Type: 
  Country: None (occurrence: None)
  Receive Date: 20110729
  Receipt Date: 20110721
  Transmission Date: 20111222
  Serious: Yes (Hospitalization, Disabling, Other)
  Sender: FDA-Public Use
  Company Number: 2011SP001056

PATIENT
  Age: 51 Year
  Sex: Female
  Weight: 75.2971 kg

DRUGS (4)
  1. NUVARING [Suspect]
     Indication: CONTRACEPTION
     Dosage: VAG
     Route: 067
     Dates: start: 20060301, end: 20090115
  2. NUVARING [Suspect]
     Indication: MENSTRUAL CYCLE MANAGEMENT
     Dosage: VAG
     Route: 067
     Dates: start: 20060301, end: 20090115
  3. EFFEXOR XR [Suspect]
     Indication: PRODUCT USED FOR UNKNOWN INDICATION
     Dosage: 37.5 DF;BID;PO 37.5 DF;BID;PO
     Route: 048
     Dates: end: 20080418
  4. EFFEXOR XR [Suspect]
     Indication: PRODUCT USED FOR UNKNOWN INDICATION
     Dosage: 37.5 DF;BID;PO 37.5 DF;BID;PO
     Route: 048
     Dates: start: 20080401

REACTIONS (42)
  - DIARRHOEA [None]
  - DRUG WITHDRAWAL SYNDROME [None]
  - MEMORY IMPAIRMENT [None]
  - CHEST DISCOMFORT [None]
  - FALL [None]
  - ROTATOR CUFF SYNDROME [None]
  - DEPRESSION [None]
  - HORDEOLUM [None]
  - NODULE [None]
  - FOLLICULITIS [None]
  - DEEP VEIN THROMBOSIS [None]
  - HYPERCOAGULATION [None]
  - SYNCOPE [None]
  - DIVERTICULITIS [None]
  - ABDOMINAL PAIN [None]
  - VERTIGO [None]
  - FEELING ABNORMAL [None]
  - OBSESSIVE-COMPULSIVE DISORDER [None]
  - RHINITIS ALLERGIC [None]
  - INSOMNIA [None]
  - EXERCISE TOLERANCE DECREASED [None]
  - DERMATITIS CONTACT [None]
  - NEURALGIA [None]
  - ORAL HERPES [None]
  - FLATULENCE [None]
  - MIGRAINE [None]
  - NECK PAIN [None]
  - ASTHENIA [None]
  - HYPERTENSION [None]
  - PRODUCT QUALITY ISSUE [None]
  - ANXIETY [None]
  - SINUS DISORDER [None]
  - PULMONARY EMBOLISM [None]
  - IRRITABLE BOWEL SYNDROME [None]
  - NERVOUS SYSTEM DISORDER [None]
  - DISTURBANCE IN ATTENTION [None]
  - DERMATITIS ATOPIC [None]
  - HAEMORRHOIDS [None]
  - RESTLESS LEGS SYNDROME [None]
  - HYPOXIA [None]
  - ECZEMA [None]
  - PULMONARY INFARCTION [None]
